FAERS Safety Report 12111019 (Version 3)
Quarter: 2016Q4

REPORT INFORMATION
  Report Type: Report from Study
  Country: DE (occurrence: DE)
  Receive Date: 20160224
  Receipt Date: 20161104
  Transmission Date: 20170206
  Serious: Yes (Hospitalization)
  Sender: FDA-Public Use
  Company Number: DE-ROCHE-1659281

PATIENT
  Age: 63 Year
  Sex: Female
  Weight: 79 kg

DRUGS (28)
  1. MONURIL [Concomitant]
     Active Substance: FOSFOMYCIN SODIUM
     Route: 065
     Dates: start: 20151107, end: 20151107
  2. PERTUZUMAB [Suspect]
     Active Substance: PERTUZUMAB
     Indication: HER-2 POSITIVE BREAST CANCER
     Dosage: LOADING DOSE
     Route: 042
     Dates: start: 20151102, end: 20151102
  3. TRASTUZUMAB [Suspect]
     Active Substance: TRASTUZUMAB
     Indication: HER-2 POSITIVE BREAST CANCER
     Dosage: DATE OF LAST DOSE PRIOR TO SAE 25/JAN/2016?LOADING DOSE
     Route: 042
     Dates: start: 20151102, end: 20151102
  4. ADENURIC [Concomitant]
     Active Substance: FEBUXOSTAT
  5. PARACETAMOL [Concomitant]
     Active Substance: ACETAMINOPHEN
     Route: 065
     Dates: start: 20151102, end: 20160531
  6. PARACETAMOL [Concomitant]
     Active Substance: ACETAMINOPHEN
     Dosage: OSE AS REQUIRED
     Route: 065
     Dates: start: 20160222
  7. DEKRISTOL [Concomitant]
     Active Substance: CHOLECALCIFEROL
     Dosage: 20 TSD.
     Route: 065
  8. LEFAX [Concomitant]
     Active Substance: DIMETHICONE
     Route: 065
     Dates: start: 20151207, end: 20160209
  9. MONURIL [Concomitant]
     Active Substance: FOSFOMYCIN SODIUM
     Route: 065
     Dates: start: 20160129, end: 20160129
  10. METFORMIN [Suspect]
     Active Substance: METFORMIN HYDROCHLORIDE
     Route: 065
     Dates: start: 20160225
  11. HYDROCHLOROTHIAZID [Concomitant]
     Active Substance: HYDROCHLOROTHIAZIDE
     Route: 065
     Dates: end: 20151107
  12. MCP [Concomitant]
     Active Substance: METOCLOPRAMIDE HYDROCHLORIDE
     Route: 065
     Dates: start: 20151102
  13. RAMIPRIL. [Concomitant]
     Active Substance: RAMIPRIL
  14. AUGENTROPFEN [Concomitant]
     Route: 065
     Dates: start: 20160413
  15. PERTUZUMAB [Suspect]
     Active Substance: PERTUZUMAB
     Dosage: MAINTENANCE DOSE?DATE OF LAST DOSE PRIOR TO SAE 25/JAN/2016
     Route: 042
  16. METFORMIN [Suspect]
     Active Substance: METFORMIN HYDROCHLORIDE
     Indication: PRODUCT USED FOR UNKNOWN INDICATION
     Route: 065
  17. GRANOCYTE [Concomitant]
     Active Substance: LENOGRASTIM
     Route: 065
     Dates: start: 20160210, end: 20160210
  18. TRASTUZUMAB [Suspect]
     Active Substance: TRASTUZUMAB
     Dosage: DATE OF LAST DOSE PRIOR TO SAE 25/JAN/2016?MAINTENANCE DOSE
     Route: 042
  19. L-THYROXIN [Concomitant]
     Active Substance: LEVOTHYROXINE SODIUM
     Route: 065
     Dates: start: 19930101
  20. PARACETAMOL [Concomitant]
     Active Substance: ACETAMINOPHEN
     Route: 065
     Dates: start: 20151104, end: 20151104
  21. PARACETAMOL [Concomitant]
     Active Substance: ACETAMINOPHEN
     Route: 065
     Dates: start: 20151108, end: 20151116
  22. PANTOPRAZOL [Concomitant]
     Active Substance: PANTOPRAZOLE SODIUM
     Route: 065
     Dates: start: 20151029
  23. HEPATODORON [Concomitant]
     Route: 065
     Dates: start: 20160225, end: 20160307
  24. HELIXOR [Concomitant]
     Route: 065
     Dates: start: 20160318
  25. KETOTIFEN [Concomitant]
     Active Substance: KETOTIFEN
     Route: 065
     Dates: start: 20160413
  26. HYDROCHLOROTHIAZID [Concomitant]
     Active Substance: HYDROCHLOROTHIAZIDE
     Route: 065
     Dates: start: 20151125
  27. PARACETAMOL [Concomitant]
     Active Substance: ACETAMINOPHEN
     Route: 065
     Dates: start: 20151125, end: 20160211
  28. CLEXANE [Concomitant]
     Active Substance: ENOXAPARIN SODIUM
     Route: 065
     Dates: start: 20151029

REACTIONS (2)
  - Constipation [Recovered/Resolved]
  - Gastrointestinal pain [Recovered/Resolved]

NARRATIVE: CASE EVENT DATE: 20151106
